FAERS Safety Report 15539848 (Version 1)
Quarter: 2018Q4

REPORT INFORMATION
  Report Type: Spontaneous
  Country: US (occurrence: US)
  Receive Date: 20181023
  Receipt Date: 20181023
  Transmission Date: 20190205
  Serious: Yes (Disabling, Other)
  Sender: FDA-Public Use
  Company Number: US-HTU-2018US017707

PATIENT
  Sex: Male

DRUGS (5)
  1. PRAVASTATIN SODIUM 20 MG TABLET [Concomitant]
  2. BEXAROTENE. [Concomitant]
     Active Substance: BEXAROTENE
  3. METFORMIN HCL 1000 MG TABLET [Concomitant]
  4. VALCHLOR [Suspect]
     Active Substance: MECHLORETHAMINE
     Indication: MYCOSIS FUNGOIDES
     Dosage: UNK, UNKNOWN
     Route: 061
     Dates: start: 20160930
  5. LISINOPRIL 10 MG TABLET [Concomitant]
     Active Substance: LISINOPRIL

REACTIONS (2)
  - Dementia [Not Recovered/Not Resolved]
  - Cerebrovascular accident [Not Recovered/Not Resolved]
